FAERS Safety Report 21141519 (Version 1)
Quarter: 2022Q3

REPORT INFORMATION
  Report Type: Spontaneous
  Country: US (occurrence: US)
  Receive Date: 20220728
  Receipt Date: 20220728
  Transmission Date: 20221027
  Serious: Yes (Hospitalization, Other)
  Sender: FDA-Public Use
  Company Number: US-PFIZER INC-202201006249

PATIENT
  Age: 68 Year
  Sex: Female

DRUGS (1)
  1. PAXLOVID [Suspect]
     Active Substance: NIRMATRELVIR\RITONAVIR
     Indication: COVID-19 treatment
     Dosage: [PF-07321332 300 MG]/[RITONAVIR 100 MG]; 2X/DAY;
     Dates: start: 20220705

REACTIONS (13)
  - Hyperhidrosis [Unknown]
  - Feeling abnormal [Unknown]
  - Syncope [Unknown]
  - Fall [Unknown]
  - Flatulence [Unknown]
  - Diarrhoea [Unknown]
  - Vomiting [Unknown]
  - Peripheral swelling [Unknown]
  - Lower limb fracture [Unknown]
  - Gait inability [Unknown]
  - Arthralgia [Unknown]
  - Ligament sprain [Unknown]
  - Dehydration [Unknown]

NARRATIVE: CASE EVENT DATE: 20220701
